FAERS Safety Report 9084909 (Version 1)
Quarter: 2013Q1

REPORT INFORMATION
  Report Type: Spontaneous
  Country: US (occurrence: US)
  Receive Date: 20130131
  Receipt Date: 20130131
  Transmission Date: 20140127
  Serious: No
  Sender: FDA-Public Use
  Company Number: US-ABBOTT-12P-163-0995649-00

PATIENT
  Sex: 0

DRUGS (5)
  1. HUMIRA [Suspect]
     Indication: CROHN^S DISEASE
  2. CIMZIA [Suspect]
     Indication: CROHN^S DISEASE
  3. PREDNISONE [Concomitant]
     Indication: PRODUCT USED FOR UNKNOWN INDICATION
  4. 6-MP [Concomitant]
     Indication: CROHN^S DISEASE
  5. IMURAN [Concomitant]
     Indication: CROHN^S DISEASE

REACTIONS (10)
  - Nervous system disorder [Unknown]
  - Pain [Unknown]
  - Muscular weakness [Unknown]
  - Tremor [Unknown]
  - Dizziness [Unknown]
  - Pyrexia [Unknown]
  - Sensation of heaviness [Unknown]
  - Movement disorder [Unknown]
  - Blepharospasm [Unknown]
  - Vision blurred [Unknown]
